FAERS Safety Report 9570392 (Version 1)
Quarter: 2013Q3

REPORT INFORMATION
  Report Type: Spontaneous
  Country: US (occurrence: None)
  Receive Date: 20130926
  Receipt Date: 20130926
  Transmission Date: 20140515
  Serious: No
  Sender: FDA-Public Use
  Company Number: None

PATIENT
  Age: 63 Year
  Sex: Female

DRUGS (1)
  1. CYMBALTA [Suspect]

REACTIONS (6)
  - Drug withdrawal syndrome [None]
  - Dizziness [None]
  - Nausea [None]
  - Impaired driving ability [None]
  - Vision blurred [None]
  - Paraesthesia [None]
